FAERS Safety Report 12162234 (Version 3)
Quarter: 2016Q1

REPORT INFORMATION
  Report Type: Report from Study
  Country: CA (occurrence: CA)
  Receive Date: 20160309
  Receipt Date: 20160322
  Transmission Date: 20160526
  Serious: Yes (Other)
  Sender: FDA-Public Use
  Company Number: CA-ROCHE-1722488

PATIENT
  Age: 56 Year
  Sex: Male
  Weight: 65 kg

DRUGS (25)
  1. RITUXAN [Suspect]
     Active Substance: RITUXIMAB
     Route: 042
     Dates: start: 2010
  2. ALLOPURINOL. [Concomitant]
     Active Substance: ALLOPURINOL
     Dosage: FOR CHEMOTHERAPY
     Route: 065
  3. HYDROMORPH CONTIN [Concomitant]
     Active Substance: HYDROMORPHONE
  4. ATORVASTATIN [Concomitant]
     Active Substance: ATORVASTATIN
  5. PREDNISOLONE. [Concomitant]
     Active Substance: PREDNISOLONE
     Route: 065
     Dates: start: 20160229
  6. BENADRYL [Concomitant]
     Active Substance: DIPHENHYDRAMINE HYDROCHLORIDE
     Route: 048
     Dates: start: 20160318
  7. PREDNISOLONE. [Concomitant]
     Active Substance: PREDNISOLONE
     Route: 065
     Dates: start: 201005
  8. ONDANSETRON [Concomitant]
     Active Substance: ONDANSETRON
     Dosage: POST CHEMOTHERAPY FOR TWO DAYS
     Route: 065
  9. DOXORUBICIN [Concomitant]
     Active Substance: DOXORUBICIN
     Route: 065
     Dates: start: 20160229
  10. VINCRISTINE [Concomitant]
     Active Substance: VINCRISTINE
     Route: 065
     Dates: start: 20160229
  11. DEXAMETHASONE. [Concomitant]
     Active Substance: DEXAMETHASONE
     Dosage: FOR 5 ROUNDS (10 TREATMENT DAYS IN TOTAL)
     Route: 065
     Dates: start: 201510
  12. SOLU-MEDROL [Concomitant]
     Active Substance: METHYLPREDNISOLONE SODIUM SUCCINATE
     Route: 042
     Dates: start: 20160318
  13. RITUXAN [Suspect]
     Active Substance: RITUXIMAB
     Indication: NON-HODGKIN^S LYMPHOMA
     Route: 042
     Dates: start: 201101
  14. FILGRASTIM [Concomitant]
     Active Substance: FILGRASTIM
     Dosage: UNTIL WBC RECOVER
     Route: 065
  15. SENNOSIDES. [Concomitant]
     Active Substance: SENNOSIDES
  16. GEMCITABINE [Concomitant]
     Active Substance: GEMCITABINE\GEMCITABINE HYDROCHLORIDE
     Dosage: FOR 5 ROUNDS (10 TREATMENT DAYS IN TOTAL)
     Route: 065
     Dates: start: 201510
  17. TYLENOL [Concomitant]
     Active Substance: ACETAMINOPHEN
     Route: 048
     Dates: start: 20160318
  18. PREDNISONE. [Concomitant]
     Active Substance: PREDNISONE
  19. OLANZAPINE. [Concomitant]
     Active Substance: OLANZAPINE
     Dosage: AT BEDTIME
     Route: 065
  20. CYCLOPHOSPHAMIDE. [Concomitant]
     Active Substance: CYCLOPHOSPHAMIDE
     Route: 065
     Dates: start: 201005
  21. DOXORUBICIN [Concomitant]
     Active Substance: DOXORUBICIN
     Route: 065
     Dates: start: 201005
  22. RITUXAN [Suspect]
     Active Substance: RITUXIMAB
     Route: 042
     Dates: start: 20160318
  23. CYCLOPHOSPHAMIDE. [Concomitant]
     Active Substance: CYCLOPHOSPHAMIDE
     Route: 065
     Dates: start: 20160229
  24. VINCRISTINE [Concomitant]
     Active Substance: VINCRISTINE
     Route: 065
     Dates: start: 201005
  25. CISPLATIN. [Concomitant]
     Active Substance: CISPLATIN
     Dosage: FOR 5 ROUNDS (10 TREATMENT DAYS IN TOTAL)
     Route: 065
     Dates: start: 201510

REACTIONS (3)
  - Heart rate increased [Unknown]
  - Diffuse large B-cell lymphoma recurrent [Unknown]
  - Weight decreased [Unknown]

NARRATIVE: CASE EVENT DATE: 201603
